FAERS Safety Report 9610650 (Version 1)
Quarter: 2013Q4

REPORT INFORMATION
  Report Type: Spontaneous
  Country: US (occurrence: US)
  Receive Date: 20131009
  Receipt Date: 20131009
  Transmission Date: 20140711
  Serious: No
  Sender: FDA-Public Use
  Company Number: US-BAYER-2013-121570

PATIENT
  Age: 82 Year
  Sex: Female
  Weight: 59 kg

DRUGS (5)
  1. ALEVE CAPLET [Suspect]
     Dosage: 2 DF, BID
     Route: 048
     Dates: start: 20131002
  2. BAYER ASPIRIN REGIMEN ADULT LOW STRENGTH [Concomitant]
     Indication: ISCHAEMIC HEART DISEASE PROPHYLAXIS
     Dosage: 1 DF, QD
  3. SYNTHROID [Concomitant]
  4. TRICOR [Concomitant]
  5. GABAPENTIN [Concomitant]

REACTIONS (2)
  - Somnolence [Not Recovered/Not Resolved]
  - Extra dose administered [None]
